FAERS Safety Report 13122893 (Version 1)
Quarter: 2017Q1

REPORT INFORMATION
  Report Type: Report from Study
  Country: US (occurrence: US)
  Receive Date: 20170117
  Receipt Date: 20170117
  Transmission Date: 20170428
  Serious: Yes (Hospitalization)
  Sender: FDA-Public Use
  Company Number: US-TEVA-729379USA

PATIENT
  Age: 59 Year
  Sex: Female
  Weight: 68.06 kg

DRUGS (21)
  1. METHOTREXATE. [Suspect]
     Active Substance: METHOTREXATE
     Route: 048
     Dates: start: 20150127, end: 20160314
  2. GEODON [Concomitant]
     Active Substance: ZIPRASIDONE HYDROCHLORIDE\ZIPRASIDONE MESYLATE
  3. NICOTINE. [Concomitant]
     Active Substance: NICOTINE
  4. ZETIA [Concomitant]
     Active Substance: EZETIMIBE
  5. METHOTREXATE. [Suspect]
     Active Substance: METHOTREXATE
     Indication: RHEUMATOID ARTHRITIS
     Route: 048
     Dates: start: 201205
  6. KLONOPIN [Concomitant]
     Active Substance: CLONAZEPAM
  7. PLAVIX [Concomitant]
     Active Substance: CLOPIDOGREL BISULFATE
  8. ASA [Concomitant]
     Active Substance: ASPIRIN
  9. BENAZEPRIL [Concomitant]
     Active Substance: BENAZEPRIL HYDROCHLORIDE
  10. AMITIZA [Concomitant]
     Active Substance: LUBIPROSTONE
  11. FOSAMAX [Concomitant]
     Active Substance: ALENDRONATE SODIUM
  12. TRIAZOLAM. [Concomitant]
     Active Substance: TRIAZOLAM
  13. NAPROXEN. [Concomitant]
     Active Substance: NAPROXEN
  14. MLODIPINE [Concomitant]
  15. VITAMIN D [Concomitant]
     Active Substance: CHOLECALCIFEROL
  16. DEXILANT [Concomitant]
     Active Substance: DEXLANSOPRAZOLE
  17. CYMBALTA [Concomitant]
     Active Substance: DULOXETINE HYDROCHLORIDE
  18. PF-06410293;ADALIMUMAB [Suspect]
     Active Substance: INVESTIGATIONAL PRODUCT
     Indication: RHEUMATOID ARTHRITIS
     Dates: start: 20150914, end: 20160314
  19. LIPITOR [Concomitant]
     Active Substance: ATORVASTATIN CALCIUM
  20. CALCIUM [Concomitant]
     Active Substance: CALCIUM
  21. FOLIC ACID. [Concomitant]
     Active Substance: FOLIC ACID
     Dates: start: 20120501

REACTIONS (1)
  - Osteomyelitis [Recovered/Resolved]

NARRATIVE: CASE EVENT DATE: 20160405
